FAERS Safety Report 8061965-2 (Version None)
Quarter: 2012Q1

REPORT INFORMATION
  Report Type: 
  Country: None (occurrence: None)
  Receive Date: 20120118
  Receipt Date: 20120109
  Transmission Date: 20120608
  Serious: Yes (Death, Hospitalization)
  Sender: FDA-Public Use
  Company Number: JPI-P-003788

PATIENT
  Age: 57 Year
  Sex: Male

DRUGS (8)
  1. METFORMIN HYDROCHLORIDE [Concomitant]
  2. VENLAFAXINE [Concomitant]
  3. LEVOTHYROXINE SODIUM [Concomitant]
  4. XYREM [Suspect]
     Indication: CATAPLEXY
     Dosage: 4.5 GM (2.25 GM,2 IN 1 D),ORAL
     Route: 048
     Dates: start: 20071128, end: 20080501
  5. XYREM [Suspect]
     Indication: SLEEP APNOEA SYNDROME
     Dosage: 4.5 GM (2.25 GM,2 IN 1 D),ORAL
     Route: 048
     Dates: start: 20071128, end: 20080501
  6. XYREM [Suspect]
     Indication: NARCOLEPSY
     Dosage: 4.5 GM (2.25 GM,2 IN 1 D),ORAL
     Route: 048
     Dates: start: 20071128, end: 20080501
  7. ATORVASTATIN CALCIUM [Concomitant]
  8. LISINOPRIL AND HYDROCHLOROTHIAZIDE [Concomitant]

REACTIONS (7)
  - NEURALGIA [None]
  - ACUTE MYOCARDIAL INFARCTION [None]
  - CARDIAC FAILURE CONGESTIVE [None]
  - MYALGIA [None]
  - SOMNAMBULISM [None]
  - MUSCULAR WEAKNESS [None]
  - ISCHAEMIC CARDIOMYOPATHY [None]
